FAERS Safety Report 5154649-1 (Version None)
Quarter: 2006Q4

REPORT INFORMATION
  Report Type: 
  Country: None (occurrence: None)
  Receive Date: 20061113
  Receipt Date: 20061031
  Transmission Date: 20070319
  Serious: Yes (Hospitalization)
  Sender: FDA-Public Use
  Company Number: 2005167537

PATIENT
  Age: 83 Year
  Sex: Female
  Weight: 71.2 kg

DRUGS (6)
  1. SUTENT [Suspect]
     Indication: GASTROINTESTINAL STROMAL TUMOUR
     Dosage: (50 MG, 1 IN 1 D), ORAL
     Route: 048
     Dates: start: 20051115
  2. RAMIPRIL [Concomitant]
  3. NORVASC [Concomitant]
  4. POTASSIUM CHLORIDE [Concomitant]
  5. SIMVASTATIN [Concomitant]
  6. SOLPRIN (ACETYLSALICYLATE CALCIUM) [Concomitant]

REACTIONS (6)
  - ASCITES [None]
  - CONDITION AGGRAVATED [None]
  - DIARRHOEA [None]
  - NAUSEA [None]
  - PLEURAL EFFUSION [None]
  - VOMITING [None]
